FAERS Safety Report 21695423 (Version 1)
Quarter: 2022Q4

REPORT INFORMATION
  Report Type: Spontaneous
  Country: US (occurrence: None)
  Receive Date: 20221207
  Receipt Date: 20221207
  Transmission Date: 20230112
  Serious: Yes (Life-Threatening)
  Sender: FDA-Public Use
  Company Number: None

PATIENT
  Age: 58 Year
  Sex: Female
  Weight: 51.75 kg

DRUGS (5)
  1. ERYTHRITOL [Suspect]
     Active Substance: ERYTHRITOL
     Indication: Product used for unknown indication
  2. EPIPEN [Suspect]
     Active Substance: EPINEPHRINE
  3. AMLODIPINE [Concomitant]
     Active Substance: AMLODIPINE BESYLATE
  4. UNSPECIFIED INGREDIENT [Concomitant]
     Active Substance: UNSPECIFIED INGREDIENT
  5. FLONASE [Concomitant]
     Active Substance: FLUTICASONE PROPIONATE

REACTIONS (3)
  - Injection site bruising [None]
  - Injection site pain [None]
  - Food allergy [None]

NARRATIVE: CASE EVENT DATE: 20220910
